FAERS Safety Report 4510841-8 (Version None)
Quarter: 2004Q4

REPORT INFORMATION
  Report Type: 
  Country: None (occurrence: None)
  Receive Date: 20041025
  Receipt Date: 20040609
  Transmission Date: 20050328
  Serious: Yes (Hospitalization)
  Sender: FDA-Public Use
  Company Number: NSADSS2003008505

PATIENT
  Age: 59 Year
  Sex: Female
  Weight: 68.0396 kg

DRUGS (27)
  1. REMICADE [Suspect]
     Indication: RHEUMATOID ARTHRITIS
     Dosage: SEE IMAGE
     Route: 041
     Dates: start: 20021113, end: 20021113
  2. REMICADE [Suspect]
     Indication: RHEUMATOID ARTHRITIS
     Dosage: SEE IMAGE
     Route: 041
     Dates: start: 20020124
  3. REMICADE [Suspect]
     Indication: RHEUMATOID ARTHRITIS
     Dosage: SEE IMAGE
     Route: 041
     Dates: start: 20020226
  4. REMICADE [Suspect]
     Indication: RHEUMATOID ARTHRITIS
     Dosage: SEE IMAGE
     Route: 041
     Dates: start: 20020321
  5. REMICADE [Suspect]
     Indication: RHEUMATOID ARTHRITIS
     Dosage: SEE IMAGE
     Route: 041
     Dates: start: 20020516
  6. REMICADE [Suspect]
     Indication: RHEUMATOID ARTHRITIS
     Dosage: SEE IMAGE
     Route: 041
     Dates: start: 20020905
  7. REMICADE [Suspect]
     Indication: RHEUMATOID ARTHRITIS
     Dosage: SEE IMAGE
     Route: 041
     Dates: start: 29920711
  8. REMICADE [Suspect]
  9. REMICADE [Suspect]
  10. REMICADE [Suspect]
  11. REMICADE [Suspect]
  12. REMICADE [Suspect]
  13. REMICADE [Suspect]
  14. METHOTREXATE SODIUM [Concomitant]
  15. AZULFIDINE [Concomitant]
  16. PREDNISONE [Concomitant]
  17. FOLIC ACID [Concomitant]
  18. NORVASC [Concomitant]
  19. PRINIVIL [Concomitant]
  20. ACUTROL (MAXITROL) [Concomitant]
  21. ATENOLOL [Concomitant]
  22. GLUCOVANCE (GLIBOMET) [Concomitant]
  23. VITAMIN E [Concomitant]
  24. ADVIL [Concomitant]
  25. MULTIVITAMIN (MULTIVITAMINS) [Concomitant]
  26. CALCIUM (CALCIUM) [Concomitant]
  27. FEMHRT (ANOVLAR) [Concomitant]

REACTIONS (2)
  - PNEUMOCYSTIS CARINII INFECTION [None]
  - VIRAL INFECTION [None]
